FAERS Safety Report 6654652-6 (Version None)
Quarter: 2010Q1

REPORT INFORMATION
  Report Type: 
  Country: None (occurrence: None)
  Receive Date: 20100326
  Receipt Date: 20100315
  Transmission Date: 20100710
  Serious: No
  Sender: FDA-Public Use
  Company Number: JP-ALLERGAN-1003159US

PATIENT
  Age: 69 Year
  Sex: Male

DRUGS (6)
  1. ALESION TABLET [Suspect]
     Indication: DRUG HYPERSENSITIVITY
     Dosage: 20 MG, QD
     Dates: start: 20091228, end: 20100205
  2. GASMOTIN [Concomitant]
     Dosage: UNK
  3. NAUZELIN [Concomitant]
     Dosage: UNK
  4. WARFARIN [Concomitant]
     Dosage: UNK
  5. LANSOPRAZOLE-OD [Concomitant]
     Dosage: UNK
  6. DIGOXIN [Concomitant]
     Dosage: UNK

REACTIONS (1)
  - HEPATIC FUNCTION ABNORMAL [None]
